FAERS Safety Report 18822378 (Version 3)
Quarter: 2021Q1

REPORT INFORMATION
  Report Type: Report from Study
  Country: AT (occurrence: AT)
  Receive Date: 20210202
  Receipt Date: 20210325
  Transmission Date: 20210419
  Serious: Yes (Other)
  Sender: FDA-Public Use
  Company Number: PHHY2018AT024482

PATIENT
  Sex: Female
  Weight: 85 kg

DRUGS (3)
  1. RIBOCICLIB. [Suspect]
     Active Substance: RIBOCICLIB
     Dosage: 600 MG
     Route: 065
     Dates: start: 20191024, end: 20210111
  2. DIBONDRIN [Concomitant]
     Active Substance: DIPHENHYDRAMINE HYDROCHLORIDE
     Indication: PRODUCT USED FOR UNKNOWN INDICATION
     Dosage: UNK
     Route: 065
  3. RIBOCICLIB. [Suspect]
     Active Substance: RIBOCICLIB
     Indication: BREAST CANCER
     Dosage: 600 MG
     Route: 065
     Dates: start: 20180514, end: 20191024

REACTIONS (21)
  - Arthralgia [Not Recovered/Not Resolved]
  - Insomnia [Not Recovered/Not Resolved]
  - Oedema peripheral [Recovered/Resolved]
  - Gastroenteritis viral [Recovered/Resolved]
  - Oral herpes [Recovered/Resolved]
  - White blood cell count decreased [Not Recovered/Not Resolved]
  - Arthralgia [Recovered/Resolved]
  - Radiation skin injury [Not Recovered/Not Resolved]
  - Hot flush [Not Recovered/Not Resolved]
  - Neutrophil count decreased [Recovered/Resolved]
  - Alopecia [Not Recovered/Not Resolved]
  - Pruritus [Not Recovered/Not Resolved]
  - Fatigue [Not Recovered/Not Resolved]
  - Dry mouth [Not Recovered/Not Resolved]
  - Eye swelling [Recovered/Resolved]
  - Angioedema [Recovered/Resolved]
  - Vertigo [Not Recovered/Not Resolved]
  - Dermatitis [Unknown]
  - Corneal bleeding [Recovered/Resolved]
  - Hypersensitivity [Unknown]
  - Dry skin [Not Recovered/Not Resolved]

NARRATIVE: CASE EVENT DATE: 20180519
